FAERS Safety Report 6711483-6 (Version None)
Quarter: 2010Q2

REPORT INFORMATION
  Report Type: 
  Country: None (occurrence: None)
  Receive Date: 20100505
  Receipt Date: 20100429
  Transmission Date: 20101027
  Serious: Yes (Death)
  Sender: FDA-Public Use
  Company Number: DE-ELI_LILLY_AND_COMPANY-DE201003006230

PATIENT
  Sex: Male
  Weight: 60 kg

DRUGS (3)
  1. GEMCITABINE HCL [Suspect]
     Indication: NON-SMALL CELL LUNG CANCER
     Dosage: 2000 MG, DAY 1 EVERY 3 WEEKS FOR FOUR CYCLES
     Route: 042
     Dates: start: 20100316
  2. CETUXIMAB [Suspect]
     Indication: NON-SMALL CELL LUNG CANCER
     Dosage: 668 MG, DAY ONE OF CYCLE ONE ONLY
     Route: 042
     Dates: start: 20100316
  3. CARBOPLATIN [Suspect]
     Indication: NON-SMALL CELL LUNG CANCER
     Dosage: 670 MG, DAY 1 EVERY 3 WEEKS FOR FOUR CYCLES
     Route: 042
     Dates: start: 20100316

REACTIONS (1)
  - CARDIAC FAILURE [None]
